FAERS Safety Report 7277387-8 (Version None)
Quarter: 2011Q1

REPORT INFORMATION
  Report Type: 
  Country: None (occurrence: None)
  Receive Date: 20110207
  Receipt Date: 20110201
  Transmission Date: 20110831
  Serious: Yes (Hospitalization)
  Sender: FDA-Public Use
  Company Number: BR-US-EMD SERONO, INC.-230336J10BRA

PATIENT
  Sex: Female

DRUGS (2)
  1. REBIF [Suspect]
     Indication: RELAPSING-REMITTING MULTIPLE SCLEROSIS
     Dates: start: 20031112
  2. LEXAPRO [Concomitant]

REACTIONS (4)
  - VIITH NERVE PARALYSIS [None]
  - HYPOKINESIA [None]
  - EXOSTOSIS [None]
  - MYALGIA [None]
